FAERS Safety Report 8967890 (Version 1)
Quarter: 2012Q4

REPORT INFORMATION
  Report Type: 
  Country: US (occurrence: US)
  Receive Date: 20121218
  Receipt Date: 20121218
  Transmission Date: 20130627
  Serious: No
  Sender: FDA-Public Use
  Company Number: US-GLAXOSMITHKLINE-A0959819A

PATIENT
  Age: 80 Year
  Sex: Female

DRUGS (4)
  1. COREG CR [Suspect]
     Indication: HYPERTENSION
     Dosage: 80MG Per day
     Route: 048
     Dates: start: 20111115
  2. CLONIDINE [Concomitant]
  3. DIOVAN [Concomitant]
  4. LISINOPRIL [Concomitant]

REACTIONS (3)
  - Cough [Unknown]
  - Hypersensitivity [Unknown]
  - Weight increased [Unknown]
